FAERS Safety Report 8090716-0 (Version None)
Quarter: 2012Q1

REPORT INFORMATION
  Report Type: 
  Country: None (occurrence: None)
  Receive Date: 20120130
  Receipt Date: 20120126
  Transmission Date: 20120608
  Serious: Yes (Hospitalization, Disabling, Other)
  Sender: FDA-Public Use
  Company Number: US-MERCK-1107USA03700

PATIENT
  Age: 63 Year
  Sex: Male
  Weight: 97 kg

DRUGS (19)
  1. SYNTHROID [Concomitant]
     Route: 048
  2. GUAIFENESIN [Concomitant]
     Indication: GASTROOESOPHAGEAL REFLUX DISEASE
     Route: 065
     Dates: start: 20000101
  3. FOSAMAX [Suspect]
     Route: 048
     Dates: start: 20080301, end: 20100101
  4. COMBIVENT [Concomitant]
     Route: 055
  5. ZANTAC [Concomitant]
     Route: 065
     Dates: start: 19990901
  6. PREDNISONE [Concomitant]
     Route: 065
  7. CASODEX [Concomitant]
     Route: 065
     Dates: start: 19990101
  8. ATROVENT [Concomitant]
     Route: 065
  9. FOSINOPRIL SODIUM [Concomitant]
     Route: 048
  10. FOSAMAX [Suspect]
     Indication: OSTEOPOROSIS
     Route: 048
     Dates: start: 20010901, end: 20080301
  11. CALCIUM (UNSPECIFIED) [Concomitant]
     Route: 065
  12. LOSARTAN POTASSIUM [Concomitant]
     Route: 065
  13. VERAPAMIL HYDROCHLORIDE [Concomitant]
     Indication: HEART RATE ABNORMAL
     Route: 065
     Dates: start: 20000101
  14. MONTELUKAST SODIUM [Concomitant]
     Indication: THYROID DISORDER
     Route: 065
     Dates: start: 20000101
  15. OMEPRAZOLE [Concomitant]
     Indication: GASTROOESOPHAGEAL REFLUX DISEASE
     Route: 065
     Dates: start: 20010101
  16. ZOLADEX [Concomitant]
     Route: 065
     Dates: start: 19990101
  17. METFORMIN [Concomitant]
     Route: 065
  18. FLUNISOLIDE [Concomitant]
     Route: 055
  19. ALENDRONATE SODIUM [Suspect]
     Route: 048
     Dates: start: 20030901

REACTIONS (59)
  - PNEUMONIA [None]
  - LUNG NEOPLASM [None]
  - COLONIC POLYP [None]
  - DECREASED APPETITE [None]
  - NAUSEA [None]
  - LUNG DISORDER [None]
  - CHOLELITHIASIS [None]
  - LOBAR PNEUMONIA [None]
  - BREAST PAIN [None]
  - OSTEOARTHRITIS [None]
  - IMMUNE SYSTEM DISORDER [None]
  - FUNGAL INFECTION [None]
  - PERIPHERAL ARTERIAL OCCLUSIVE DISEASE [None]
  - ATRIAL FIBRILLATION [None]
  - LARYNGEAL CANCER [None]
  - RIB FRACTURE [None]
  - UMBILICAL HERNIA [None]
  - SUPRAVENTRICULAR TACHYCARDIA [None]
  - UPPER GASTROINTESTINAL HAEMORRHAGE [None]
  - SLEEP APNOEA SYNDROME [None]
  - OPEN ANGLE GLAUCOMA [None]
  - PRESBYOPIA [None]
  - HYPERLIPIDAEMIA [None]
  - CHOLECYSTITIS INFECTIVE [None]
  - DIZZINESS [None]
  - LIVER FUNCTION TEST ABNORMAL [None]
  - OSTEONECROSIS OF JAW [None]
  - PULMONARY EMBOLISM [None]
  - AORTIC CALCIFICATION [None]
  - HEART RATE IRREGULAR [None]
  - REFRACTION DISORDER [None]
  - ARTERIOSCLEROSIS CORONARY ARTERY [None]
  - CATARACT [None]
  - ATELECTASIS [None]
  - ABDOMINAL HERNIA [None]
  - TOOTH ABSCESS [None]
  - PULMONARY GRANULOMA [None]
  - ATRIAL TACHYCARDIA [None]
  - ORGANIC ERECTILE DYSFUNCTION [None]
  - HYPERHIDROSIS [None]
  - DIVERTICULITIS [None]
  - ATRIAL FLUTTER [None]
  - RECTAL HAEMORRHAGE [None]
  - INFECTIOUS PLEURAL EFFUSION [None]
  - ABDOMINAL PAIN [None]
  - DIARRHOEA [None]
  - WEIGHT DECREASED [None]
  - VITAMIN D DEFICIENCY [None]
  - MUSCLE DISORDER [None]
  - PLEURAL DISORDER [None]
  - IRON DEFICIENCY ANAEMIA [None]
  - GASTROENTERITIS [None]
  - HERNIA [None]
  - SYNCOPE [None]
  - ARTHRITIS [None]
  - CHRONIC OBSTRUCTIVE PULMONARY DISEASE [None]
  - INCISIONAL HERNIA [None]
  - STOMATITIS [None]
  - HAEMORRHOIDS [None]
